FAERS Safety Report 8843585 (Version 1)
Quarter: 2012Q4

REPORT INFORMATION
  Report Type: 
  Country: US (occurrence: US)
  Receive Date: 20121016
  Receipt Date: 20121016
  Transmission Date: 20130627
  Serious: Yes (Other)
  Sender: FDA-Public Use
  Company Number: US-ROCHE-1140876

PATIENT
  Sex: Female

DRUGS (10)
  1. NUTROPIN [Suspect]
     Indication: GROWTH HORMONE DEFICIENCY
     Route: 058
     Dates: start: 19991129
  2. XANAX [Concomitant]
  3. INDOMETHACIN [Concomitant]
  4. NASONEX [Concomitant]
  5. PREMARIN [Concomitant]
  6. PAXIL [Concomitant]
  7. FLEXERIL [Concomitant]
  8. AMBIEN [Concomitant]
  9. VICODIN [Concomitant]
  10. CALCIUM [Concomitant]
     Route: 058

REACTIONS (4)
  - Tunnel vision [Unknown]
  - Muscular weakness [Unknown]
  - Asthenia [Unknown]
  - Back pain [Unknown]
